FAERS Safety Report 8504280-2 (Version None)
Quarter: 2012Q3

REPORT INFORMATION
  Report Type: 
  Country: None (occurrence: None)
  Receive Date: 20120711
  Receipt Date: 20120706
  Transmission Date: 20120928
  Serious: Yes (Hospitalization)
  Sender: FDA-Public Use
  Company Number: PHHY2012TW058428

PATIENT
  Age: 67 Year
  Sex: Female

DRUGS (1)
  1. HEPARIN [Suspect]

REACTIONS (5)
  - BURSITIS [None]
  - EFFUSION [None]
  - JOINT SWELLING [None]
  - HYPERPHOSPHATAEMIA [None]
  - TENDERNESS [None]
